FAERS Safety Report 8878907 (Version 1)
Quarter: 2012Q4

REPORT INFORMATION
  Report Type: 
  Country: US (occurrence: US)
  Receive Date: 20121030
  Receipt Date: 20121030
  Transmission Date: 20130627
  Serious: No
  Sender: FDA-Public Use
  Company Number: US-VERTEX PHARMACEUTICAL INC.-2012-023613

PATIENT
  Age: 57 Year
  Sex: Male
  Weight: 71 kg

DRUGS (5)
  1. VX-950 [Suspect]
     Indication: HEPATITIS C
     Dosage: 750 mg, tid
     Route: 048
  2. RIBAPAK [Concomitant]
     Indication: HEPATITIS C
     Dosage: 1200/day
  3. PEGASYS [Concomitant]
     Indication: HEPATITIS C
  4. BENADRYL                           /00000402/ [Concomitant]
     Dosage: 25 mg, UNK
  5. CORTISONE CRE 1% [Concomitant]

REACTIONS (3)
  - Insomnia [Unknown]
  - Rash [Unknown]
  - Dysgeusia [Unknown]
